FAERS Safety Report 9442904 (Version 1)
Quarter: 2013Q3

REPORT INFORMATION
  Report Type: Spontaneous
  Country: GB (occurrence: GB)
  Receive Date: 20130806
  Receipt Date: 20130806
  Transmission Date: 20140515
  Serious: Yes (Other)
  Sender: FDA-Public Use
  Company Number: GB-JNJFOC-20130802082

PATIENT
  Sex: Female

DRUGS (2)
  1. DUROGESIC DTRANS [Suspect]
     Indication: PRODUCT USED FOR UNKNOWN INDICATION
     Route: 062
  2. DUROGESIC DTRANS [Suspect]
     Indication: PRODUCT USED FOR UNKNOWN INDICATION
     Dosage: ADVISED PATIENT TO CUT THE CORNER OFF AND APPLY TWO OF THESE 3/4 PATCHES FOR THREE DAYS EACH
     Route: 062

REACTIONS (5)
  - Drug withdrawal syndrome [Unknown]
  - Headache [Unknown]
  - Drug prescribing error [Unknown]
  - Wrong technique in drug usage process [Unknown]
  - Lethargy [Unknown]
